FAERS Safety Report 5983091-6 (Version None)
Quarter: 2008Q4

REPORT INFORMATION
  Report Type: 
  Country: None (occurrence: None)
  Receive Date: 20081204
  Receipt Date: 20081204
  Transmission Date: 20090506
  Serious: Yes (Other)
  Sender: FDA-Public Use
  Company Number: None

PATIENT
  Age: 53 Year
  Sex: Female
  Weight: 73.4827 kg

DRUGS (11)
  1. MERCAPTOPURINE [Suspect]
     Indication: CROHN'S DISEASE
     Dosage: 50 MG 1 X/DAY PO
     Route: 048
     Dates: start: 20080723, end: 20080807
  2. PRISTIQ [Concomitant]
  3. ZYRTEC [Concomitant]
  4. ZEGERID [Concomitant]
  5. CYMBALTA [Concomitant]
  6. XANAX [Concomitant]
  7. FIORICET [Concomitant]
  8. DARVOCET [Concomitant]
  9. RELPAX [Concomitant]
  10. NEURONTIN [Concomitant]
  11. PERIACTIN [Concomitant]

REACTIONS (12)
  - DIARRHOEA [None]
  - DIZZINESS [None]
  - ERYTHEMA NODOSUM [None]
  - FATIGUE [None]
  - HEADACHE [None]
  - MUSCLE SPASMS [None]
  - MYALGIA [None]
  - NAUSEA [None]
  - NECK PAIN [None]
  - PAIN [None]
  - POLLAKIURIA [None]
  - PYREXIA [None]
